FAERS Safety Report 23073308 (Version 1)
Quarter: 2023Q4

REPORT INFORMATION
  Report Type: Spontaneous
  Country: US (occurrence: US)
  Receive Date: 20231017
  Receipt Date: 20231017
  Transmission Date: 20240110
  Serious: No
  Sender: FDA-Public Use
  Company Number: US-drreddys-SPO/USA/23/0178024

PATIENT
  Age: 16 Year
  Sex: Female

DRUGS (2)
  1. ACCUTANE [Suspect]
     Active Substance: ISOTRETINOIN
     Indication: Acne
     Dosage: RMA ISSUE DATE: 30 MARCH 2022 09:11:30 AM, 27 APRIL 2022 02:24:38 PM, 26 MAY 2022 01:51:50 PM, 27 JU
  2. ACCUTANE [Suspect]
     Active Substance: ISOTRETINOIN
     Dosage: RMA ISSUE DATE: 14 JULY 2023 09:12:36 AM, 14 JULY 2023 04:49:48 PM

REACTIONS (1)
  - Back pain [Unknown]
